FAERS Safety Report 16872508 (Version 4)
Quarter: 2020Q2

REPORT INFORMATION
  Report Type: Spontaneous
  Country: US (occurrence: US)
  Receive Date: 20191001
  Receipt Date: 20200424
  Transmission Date: 20200713
  Serious: Yes (Other)
  Sender: FDA-Public Use
  Company Number: US-GILEAD-2019-0430947

PATIENT
  Age: 47 Year
  Sex: Male

DRUGS (29)
  1. TRUVADA [Suspect]
     Active Substance: EMTRICITABINE\TENOFOVIR DISOPROXIL FUMARATE
     Indication: HIV INFECTION
     Dosage: 200-300 MG
     Route: 048
     Dates: start: 20130224, end: 20160515
  2. HYDROCODONE BITARTRATE AND CHLORPHENIRAMINE MALEATE [Concomitant]
     Active Substance: CHLORPHENIRAMINE MALEATE\HYDROCODONE BITARTRATE
  3. SYNTHROID [Concomitant]
     Active Substance: LEVOTHYROXINE SODIUM
  4. MOXIFLOXACIN. [Concomitant]
     Active Substance: MOXIFLOXACIN
  5. BYSTOLIC [Concomitant]
     Active Substance: NEBIVOLOL HYDROCHLORIDE
  6. CLINDAMYCIN. [Concomitant]
     Active Substance: CLINDAMYCIN
  7. LEVOFLOXACIN. [Concomitant]
     Active Substance: LEVOFLOXACIN
  8. CYCLOBENZAPRINE. [Concomitant]
     Active Substance: CYCLOBENZAPRINE
  9. DESCOVY [Concomitant]
     Active Substance: EMTRICITABINE\TENOFOVIR ALAFENAMIDE FUMARATE
     Indication: HIV INFECTION
     Dosage: 1 DOSAGE FORM (200-25 MG), QD
     Route: 048
  10. NEVIPARINE [Concomitant]
     Active Substance: NEVIRAPINE
  11. VITAMIN B6 [Concomitant]
     Active Substance: PYRIDOXINE HYDROCHLORIDE
  12. LOSARTAN POTASSIUM. [Concomitant]
     Active Substance: LOSARTAN POTASSIUM
  13. AZITHROMYCIN ANHYDROUS. [Concomitant]
     Active Substance: AZITHROMYCIN ANHYDROUS
  14. MONTELUKAST [Concomitant]
     Active Substance: MONTELUKAST SODIUM
  15. VASCEPA [Concomitant]
     Active Substance: ICOSAPENT ETHYL
  16. BENZONATATE. [Concomitant]
     Active Substance: BENZONATATE
  17. LISINOPRIL AND HYDROCHLOROTHIAZIDE [Concomitant]
     Active Substance: HYDROCHLOROTHIAZIDE\LISINOPRIL
  18. FORTESTA [Concomitant]
     Active Substance: TESTOSTERONE
  19. ISONIAZID. [Concomitant]
     Active Substance: ISONIAZID
  20. METHYLPREDNISOLONE. [Concomitant]
     Active Substance: METHYLPREDNISOLONE
  21. ROSUVASTATIN CALCIUM. [Concomitant]
     Active Substance: ROSUVASTATIN CALCIUM
  22. ROCEPHIN [Concomitant]
     Active Substance: CEFTRIAXONE SODIUM
  23. TRUVADA [Suspect]
     Active Substance: EMTRICITABINE\TENOFOVIR DISOPROXIL FUMARATE
     Dosage: UNK
     Route: 065
     Dates: start: 2011, end: 2016
  24. HYDROCHLOROTHIAZIDE. [Concomitant]
     Active Substance: HYDROCHLOROTHIAZIDE
  25. PRAVASTATIN. [Concomitant]
     Active Substance: PRAVASTATIN
  26. ANDROGEL [Concomitant]
     Active Substance: TESTOSTERONE
  27. CHLORHEXIDINE [Concomitant]
     Active Substance: CHLORHEXIDINE
  28. LEVOCETIRIZINE [Concomitant]
     Active Substance: LEVOCETIRIZINE
  29. OXYCODONE AND ACETAMINOPHEN [Concomitant]
     Active Substance: ACETAMINOPHEN\OXYCODONE HYDROCHLORIDE

REACTIONS (11)
  - Bone density decreased [Unknown]
  - Tooth loss [Unknown]
  - Economic problem [Unknown]
  - Pain [Unknown]
  - Bone density abnormal [Unknown]
  - Vitamin D deficiency [Recovered/Resolved]
  - Anhedonia [Unknown]
  - Emotional distress [Unknown]
  - Chronic kidney disease [Not Recovered/Not Resolved]
  - Anxiety [Unknown]
  - Renal failure [Unknown]

NARRATIVE: CASE EVENT DATE: 20140129
